FAERS Safety Report 5288629-2 (Version None)
Quarter: 2007Q2

REPORT INFORMATION
  Report Type: 
  Country: None (occurrence: None)
  Receive Date: 20070405
  Receipt Date: 20070402
  Transmission Date: 20071010
  Serious: Yes (Hospitalization)
  Sender: FDA-Public Use
  Company Number: 2007CG00548

PATIENT
  Age: 18050 Day
  Sex: Female
  Weight: 68 kg

DRUGS (6)
  1. OMEPRAZOLE [Suspect]
     Route: 048
     Dates: start: 20070103, end: 20070122
  2. CLARADOL CAFEINE [Suspect]
     Route: 048
     Dates: start: 20070112, end: 20070122
  3. ORELOX [Suspect]
     Route: 048
     Dates: start: 20070112, end: 20070122
  4. ZYPREXA [Suspect]
     Route: 048
     Dates: start: 20070104, end: 20070122
  5. ACTIVELLE [Suspect]
     Route: 048
     Dates: start: 20070112, end: 20070122
  6. SEROPLEX [Suspect]
     Route: 048
     Dates: start: 20070106, end: 20070122

REACTIONS (2)
  - CHOLESTASIS [None]
  - HEPATITIS [None]
